FAERS Safety Report 9236630 (Version 1)
Quarter: 2013Q2

REPORT INFORMATION
  Report Type: Spontaneous
  Country: US (occurrence: US)
  Receive Date: 20130417
  Receipt Date: 20130417
  Transmission Date: 20140414
  Serious: Yes (Other)
  Sender: FDA-Public Use
  Company Number: US-ELI_LILLY_AND_COMPANY-US201304002505

PATIENT
  Age: 29 Year
  Sex: Female

DRUGS (5)
  1. CYMBALTA [Suspect]
     Indication: DEPRESSION
     Dosage: 30 MG, UNK
     Dates: start: 20130312, end: 20130327
  2. CYMBALTA [Suspect]
     Dosage: 60 MG, UNK
     Dates: start: 20130327, end: 20130406
  3. PAXIL [Concomitant]
     Route: 065
  4. KLONOPIN [Concomitant]
     Indication: ANXIETY
     Dosage: UNK, PRN
     Route: 065
  5. AMBIEN [Concomitant]
     Route: 065

REACTIONS (2)
  - Hypersensitivity [Not Recovered/Not Resolved]
  - Abdominal discomfort [Unknown]
